FAERS Safety Report 24166002 (Version 2)
Quarter: 2024Q4

REPORT INFORMATION
  Report Type: Spontaneous
  Country: US (occurrence: US)
  Receive Date: 20240802
  Receipt Date: 20241106
  Transmission Date: 20250114
  Serious: Yes (Other)
  Sender: ACCORD
  Company Number: US-Accord-424759

PATIENT
  Age: 61 Year
  Sex: Female

DRUGS (2)
  1. DOCETAXEL [Suspect]
     Active Substance: DOCETAXEL
     Indication: Breast cancer
     Dosage: NUMBER OF CYCLE: 12 ?FREQUENCY: WEEKLY?01/5, 08/5, 15/5: 51MG
     Dates: start: 20190501, end: 20190717
  2. ADRIAMYCIN [Suspect]
     Active Substance: DOXORUBICIN HYDROCHLORIDE
     Indication: Breast cancer
     Dates: start: 20190501, end: 20190717

REACTIONS (5)
  - Lacrimal structure injury [Unknown]
  - Blindness [Not Recovered/Not Resolved]
  - Cataract [Not Recovered/Not Resolved]
  - Glaucoma [Not Recovered/Not Resolved]
  - Dry eye [Not Recovered/Not Resolved]

NARRATIVE: CASE EVENT DATE: 20210211
